FAERS Safety Report 7264307-5 (Version None)
Quarter: 2011Q1

REPORT INFORMATION
  Report Type: 
  Country: None (occurrence: None)
  Receive Date: 20110131
  Receipt Date: 20110118
  Transmission Date: 20110831
  Serious: No
  Sender: FDA-Public Use
  Company Number: US-BIOGENIDEC-2011BI002988

PATIENT
  Age: 47 Year
  Sex: Male

DRUGS (3)
  1. TYSABRI [Suspect]
     Route: 042
     Dates: start: 20060828, end: 20080212
  2. TYSABRI [Suspect]
     Route: 042
     Dates: start: 20050113
  3. TYSABRI [Suspect]
     Indication: MULTIPLE SCLEROSIS
     Route: 042
     Dates: start: 20101207

REACTIONS (2)
  - NASOPHARYNGITIS [None]
  - URINARY TRACT INFECTION [None]
